FAERS Safety Report 7295820-2 (Version None)
Quarter: 2011Q1

REPORT INFORMATION
  Report Type: 
  Country: None (occurrence: None)
  Receive Date: 20110216
  Receipt Date: 20101215
  Transmission Date: 20110831
  Serious: Yes (Hospitalization)
  Sender: FDA-Public Use
  Company Number: US-ROCHE-732559

PATIENT
  Sex: Female
  Weight: 67.1 kg

DRUGS (10)
  1. BEVACIZUMAB [Suspect]
     Route: 042
     Dates: start: 20100820, end: 20100929
  2. DECADRON [Concomitant]
  3. CRESTOR [Concomitant]
     Route: 048
  4. CENTRUM SILVER [Concomitant]
     Indication: HYPERTENSION
     Route: 048
     Dates: start: 20100801
  5. PEMETREXED [Suspect]
     Route: 042
     Dates: start: 20100818, end: 20101027
  6. TYLENOL [Concomitant]
     Indication: PAIN
     Dosage: FREQUENCY:PRN
     Route: 048
  7. KLONOPIN [Concomitant]
     Route: 048
  8. CARBOPLATIN [Suspect]
     Dosage: DOSE:AUC OF 6
     Route: 065
     Dates: start: 20100818, end: 20101027
  9. NORVASC [Concomitant]
     Indication: HYPERTENSION
     Route: 048
     Dates: start: 20100801
  10. DILANDIOL [Concomitant]
     Indication: PAIN
     Dosage: PRN
     Route: 048
     Dates: start: 20101104

REACTIONS (5)
  - SPINAL DISORDER [None]
  - VOMITING [None]
  - DEHYDRATION [None]
  - PULMONARY EMBOLISM [None]
  - CEREBROVASCULAR ACCIDENT [None]
